FAERS Safety Report 17935287 (Version 1)
Quarter: 2020Q2

REPORT INFORMATION
  Report Type: Spontaneous
  Country: US (occurrence: US)
  Receive Date: 20200624
  Receipt Date: 20200624
  Transmission Date: 20200714
  Serious: No
  Sender: FDA-Public Use
  Company Number: US-MYLANLABS-2020M1055781

PATIENT
  Sex: Female

DRUGS (1)
  1. ESTRADIOL TRANSDERMAL SYSTEM [Suspect]
     Active Substance: ESTRADIOL
     Indication: PRODUCT USED FOR UNKNOWN INDICATION
     Dosage: 0.05 MILLIGRAM, QD
     Route: 062

REACTIONS (9)
  - Drug hypersensitivity [Unknown]
  - Application site swelling [Recovering/Resolving]
  - Application site odour [Recovering/Resolving]
  - Wrong technique in product usage process [Unknown]
  - Application site irritation [Recovering/Resolving]
  - Application site erythema [Recovering/Resolving]
  - Application site urticaria [Recovering/Resolving]
  - Application site pruritus [Recovering/Resolving]
  - Product adhesion issue [Unknown]
